FAERS Safety Report 5826431-0 (Version None)
Quarter: 2008Q3

REPORT INFORMATION
  Report Type: 
  Country: None (occurrence: None)
  Receive Date: 20080729
  Receipt Date: 20080717
  Transmission Date: 20090109
  Serious: Yes (Other)
  Sender: FDA-Public Use
  Company Number: US-PFIZER INC-2008060979

PATIENT
  Sex: Male
  Weight: 88.5 kg

DRUGS (2)
  1. CHANTIX [Suspect]
     Indication: SMOKING CESSATION THERAPY
  2. EFFEXOR [Concomitant]

REACTIONS (9)
  - ANGER [None]
  - CRYING [None]
  - DEPRESSED MOOD [None]
  - DIARRHOEA [None]
  - EMOTIONAL DISORDER [None]
  - FEAR [None]
  - IRRITABILITY [None]
  - PAIN [None]
  - SURGERY [None]
